FAERS Safety Report 5875792-5 (Version None)
Quarter: 2008Q3

REPORT INFORMATION
  Report Type: 
  Country: None (occurrence: None)
  Receive Date: 20080909
  Receipt Date: 20080828
  Transmission Date: 20090109
  Serious: Yes (Hospitalization, Other)
  Sender: FDA-Public Use
  Company Number: US-PFIZER INC-2008033570

PATIENT
  Sex: Female
  Weight: 88.5 kg

DRUGS (14)
  1. GEODON [Suspect]
     Indication: SLEEP DISORDER
     Route: 048
     Dates: start: 20080201
  2. CHANTIX [Suspect]
     Indication: EX-TOBACCO USER
     Dates: start: 20080301, end: 20080701
  3. LITHIUM [Suspect]
     Dates: end: 20080401
  4. NAPROXEN [Suspect]
  5. ATIVAN [Concomitant]
     Indication: ANXIETY
  6. RESTORIL [Concomitant]
  7. DEMEROL [Concomitant]
  8. IBUPROFEN [Concomitant]
     Indication: PAIN
  9. FIORICET [Concomitant]
  10. KEFLEX [Concomitant]
     Indication: STAPHYLOCOCCAL INFECTION
  11. ZETIA [Concomitant]
     Indication: BLOOD CHOLESTEROL INCREASED
  12. FLEXERIL [Concomitant]
  13. PROMETHAZINE [Concomitant]
  14. KLONOPIN [Concomitant]

REACTIONS (8)
  - BIPOLAR DISORDER [None]
  - BLOOD CHOLESTEROL INCREASED [None]
  - DEPRESSED MOOD [None]
  - FOOT FRACTURE [None]
  - HOMICIDAL IDEATION [None]
  - HYPERSENSITIVITY [None]
  - MENTAL DISORDER [None]
  - SEDATION [None]
